FAERS Safety Report 23836459 (Version 1)
Quarter: 2024Q2

REPORT INFORMATION
  Report Type: Spontaneous
  Country: CZ (occurrence: CZ)
  Receive Date: 20240509
  Receipt Date: 20240509
  Transmission Date: 20240716
  Serious: Yes (Other)
  Sender: FDA-Public Use
  Company Number: CZ-SUN PHARMACEUTICAL INDUSTRIES LTD-2024RR-444677

PATIENT
  Age: 40 Year
  Sex: Male

DRUGS (7)
  1. CISPLATIN [Suspect]
     Active Substance: CISPLATIN
     Indication: Transitional cell carcinoma
     Route: 065
  2. CARBOPLATIN [Suspect]
     Active Substance: CARBOPLATIN
     Indication: Transitional cell carcinoma
     Dosage: UNK
     Route: 065
  3. DOXORUBICIN [Suspect]
     Active Substance: DOXORUBICIN
     Indication: Transitional cell carcinoma
     Route: 065
  4. GEMCITABINE [Suspect]
     Active Substance: GEMCITABINE
     Indication: Transitional cell carcinoma
     Route: 065
  5. METHOTREXATE [Suspect]
     Active Substance: METHOTREXATE
     Indication: Transitional cell carcinoma
     Route: 065
  6. PACLITAXEL [Suspect]
     Active Substance: PACLITAXEL
     Indication: Transitional cell carcinoma
     Dosage: UNK
     Route: 065
  7. VINBLASTINE [Suspect]
     Active Substance: VINBLASTINE
     Indication: Transitional cell carcinoma
     Route: 065

REACTIONS (4)
  - Condition aggravated [Unknown]
  - Disease progression [Unknown]
  - Neutropenia [Unknown]
  - Hypersensitivity [Unknown]
